FAERS Safety Report 10243539 (Version 1)
Quarter: 2014Q2

REPORT INFORMATION
  Report Type: Spontaneous
  Country: VE (occurrence: None)
  Receive Date: 20140616
  Receipt Date: 20140616
  Transmission Date: 20141212
  Serious: Yes (Death)
  Sender: FDA-Public Use
  Company Number: 2014MPI00676

PATIENT
  Sex: 0

DRUGS (1)
  1. ADCETRIS (BRENTUXIMAB VEDOTIN) INJECTION, 50MG [Suspect]
     Indication: PRODUCT USED FOR UNKNOWN INDICATION
     Route: 042

REACTIONS (1)
  - Unevaluable event [None]
